FAERS Safety Report 6772129-4 (Version None)
Quarter: 2010Q2

REPORT INFORMATION
  Report Type: 
  Country: None (occurrence: None)
  Receive Date: 20100616
  Receipt Date: 20100609
  Transmission Date: 20101027
  Serious: Yes (Hospitalization)
  Sender: FDA-Public Use
  Company Number: B0659754A

PATIENT
  Age: 88 Year
  Sex: Female

DRUGS (1)
  1. AUGMENTIN '125' [Suspect]
     Dosage: 1G THREE TIMES PER DAY
     Route: 042
     Dates: start: 20100512, end: 20100518

REACTIONS (3)
  - DERMATITIS ALLERGIC [None]
  - RASH [None]
  - RASH MORBILLIFORM [None]
